FAERS Safety Report 19324966 (Version 1)
Quarter: 2021Q2

REPORT INFORMATION
  Report Type: Spontaneous
  Country: JP (occurrence: JP)
  Receive Date: 20210528
  Receipt Date: 20210528
  Transmission Date: 20210717
  Serious: Yes (Life-Threatening, Other)
  Sender: FDA-Public Use
  Company Number: JP-ACCORD-226396

PATIENT
  Age: 59 Year
  Sex: Female

DRUGS (3)
  1. CISPLATIN. [Suspect]
     Active Substance: CISPLATIN
     Indication: OESOPHAGEAL SQUAMOUS CELL CARCINOMA
     Dosage: ON DAYS 1 AND 28, 50 MG/M2 OF CDDP AFTER 4WK, 40 MG/M2 AT SECOND DOSE
  2. FLUOROURACIL. [Suspect]
     Active Substance: FLUOROURACIL
     Indication: OESOPHAGEAL SQUAMOUS CELL CARCINOMA
     Dosage: ON DAYS 1?4 AND 28?31, 500 MG/M2 OF 5FU AFTER 4WK, 400 MG/M2 AT SECOND DOSE
  3. CIPROFLOXACIN. [Concomitant]
     Active Substance: CIPROFLOXACIN
     Indication: PROPHYLAXIS
     Dosage: 200 MG X 3/D, ON DAYS 5?15

REACTIONS (4)
  - Decreased appetite [Unknown]
  - Deep vein thrombosis [Unknown]
  - Pulmonary embolism [Unknown]
  - Neutropenia [Unknown]
